FAERS Safety Report 7991114-8 (Version None)
Quarter: 2011Q4

REPORT INFORMATION
  Report Type: 
  Country: None (occurrence: None)
  Receive Date: 20111219
  Receipt Date: 20111213
  Transmission Date: 20120403
  Serious: Yes (Other)
  Sender: FDA-Public Use
  Company Number: US-ROCHE-797120

PATIENT
  Sex: Male
  Weight: 63.56 kg

DRUGS (7)
  1. ACCUTANE [Suspect]
     Route: 048
  2. ACCUTANE [Suspect]
     Route: 048
  3. ACCUTANE [Suspect]
     Route: 048
  4. ACCUTANE [Suspect]
     Indication: ACNE
     Route: 048
     Dates: start: 20100827, end: 20110210
  5. ACCUTANE [Suspect]
     Route: 048
  6. TRAZODONE HCL [Concomitant]
  7. CLARAVIS [Suspect]
     Indication: ACNE
     Route: 065

REACTIONS (3)
  - DEPRESSION [None]
  - COLITIS ULCERATIVE [None]
  - INJURY [None]
